FAERS Safety Report 9490887 (Version 1)
Quarter: 2013Q3

REPORT INFORMATION
  Report Type: Spontaneous
  Country: US (occurrence: None)
  Receive Date: 20130828
  Receipt Date: 20130828
  Transmission Date: 20140515
  Serious: No
  Sender: FDA-Public Use
  Company Number: None

PATIENT
  Age: 71 Year
  Sex: Male
  Weight: 63.96 kg

DRUGS (3)
  1. HOMEOPATHICS [Suspect]
     Indication: PRODUCT USED FOR UNKNOWN INDICATION
     Dosage: MOUTH
     Route: 048
     Dates: start: 201308
  2. HOMEOPATHICS [Suspect]
     Indication: PRODUCT USED FOR UNKNOWN INDICATION
     Dosage: MOUTH
     Route: 048
     Dates: start: 201308
  3. HOMEOPATHICS [Suspect]
     Indication: PRODUCT USED FOR UNKNOWN INDICATION
     Dosage: MOUTH
     Route: 048
     Dates: start: 201308

REACTIONS (1)
  - No adverse event [None]
